FAERS Safety Report 26023931 (Version 1)
Quarter: 2025Q4

REPORT INFORMATION
  Report Type: Report from Study
  Country: GB (occurrence: None)
  Receive Date: 20251111
  Receipt Date: 20251111
  Transmission Date: 20260119
  Serious: Yes (Hospitalization)
  Sender: Alvotech
  Company Number: GB-ALVOTECHPMS-2025-ALVOTECHPMS-005587

PATIENT
  Age: 52 Year
  Sex: Female

DRUGS (5)
  1. USTEKINUMAB [Suspect]
     Active Substance: USTEKINUMAB
     Indication: Colitis ulcerative
     Dosage: SOLUTION FOR INJECTION PRE-FILLED SYRINGES
     Route: 058
     Dates: start: 20250729
  2. GABAPENTIN [Concomitant]
     Active Substance: GABAPENTIN
  3. CODEINE [Concomitant]
     Active Substance: CODEINE
  4. SERTRALINE [Concomitant]
     Active Substance: SERTRALINE HYDROCHLORIDE
  5. POLYETHYLENE GLYCOL 3350\POTASSIUM CHLORIDE\SODIUM BICARBONATE\SODIUM [Concomitant]
     Active Substance: POLYETHYLENE GLYCOL 3350\POTASSIUM CHLORIDE\SODIUM BICARBONATE\SODIUM CHLORIDE

REACTIONS (3)
  - Crohn^s disease [Unknown]
  - Inappropriate schedule of product administration [Unknown]
  - Therapeutic response shortened [Unknown]
